FAERS Safety Report 10264175 (Version 2)
Quarter: 2014Q2

REPORT INFORMATION
  Report Type: Spontaneous
  Country: US (occurrence: US)
  Receive Date: 20140627
  Receipt Date: 20140627
  Transmission Date: 20141212
  Serious: Yes (Other)
  Sender: FDA-Public Use
  Company Number: US-ASTRAZENECA-1999AU12790

PATIENT
  Age: 65 Year
  Sex: Male
  Weight: 47.6 kg

DRUGS (8)
  1. PULMICORT FLEXHALER [Suspect]
     Indication: ASTHMA
     Dosage: 180 MCG THREE INHALATIONS BID
     Route: 055
     Dates: start: 1993
  2. SYMBICORT [Suspect]
     Indication: ASTHMA
     Dosage: 160/4.5 TWO PUFFS BID
     Route: 055
     Dates: start: 2012
  3. PREDNISONE [Suspect]
     Route: 065
  4. AEROBID [Concomitant]
  5. ALBUTEROL [Concomitant]
     Indication: PROPHYLAXIS
     Dosage: TWO PUFFS PRN
     Route: 055
  6. SINGULAIR [Concomitant]
     Indication: ASTHMA
     Route: 048
     Dates: start: 1999, end: 2014
  7. MONTELUKAST [Concomitant]
     Indication: ASTHMA
     Route: 048
     Dates: start: 2014
  8. INTAL [Concomitant]
     Indication: DYSPNOEA
     Dosage: 5 MCG ONE PUFF TWO TIMES A DAY
     Route: 055
     Dates: start: 1999

REACTIONS (13)
  - Dyspnoea [Unknown]
  - Gastric polyps [Unknown]
  - Oesophageal polyp [Unknown]
  - Tremor [Unknown]
  - Abdominal distension [Unknown]
  - Dyspnoea [Unknown]
  - Feeling abnormal [Not Recovered/Not Resolved]
  - Abdominal discomfort [Unknown]
  - Chest discomfort [Recovering/Resolving]
  - Impaired driving ability [Unknown]
  - Malaise [Unknown]
  - Device misuse [Unknown]
  - Intentional product misuse [Unknown]
